FAERS Safety Report 19174049 (Version 2)
Quarter: 2022Q2

REPORT INFORMATION
  Report Type: Spontaneous
  Country: US (occurrence: US)
  Receive Date: 20210423
  Receipt Date: 20220512
  Transmission Date: 20220721
  Serious: No
  Sender: FDA-Public Use
  Company Number: US-PFIZER INC-2021347571

PATIENT
  Age: 64 Year
  Sex: Male

DRUGS (1)
  1. METHOTREXATE SODIUM [Suspect]
     Active Substance: METHOTREXATE SODIUM
     Dosage: UNK
     Dates: start: 2017

REACTIONS (2)
  - Drug intolerance [Unknown]
  - Gastrointestinal disorder [Unknown]
